FAERS Safety Report 11128257 (Version 1)
Quarter: 2015Q2

REPORT INFORMATION
  Report Type: Spontaneous
  Country: US (occurrence: None)
  Receive Date: 20150520
  Receipt Date: 20150520
  Transmission Date: 20150821
  Serious: Yes (Disabling)
  Sender: FDA-Public Use
  Company Number: None

PATIENT
  Age: 54 Year
  Sex: Female
  Weight: 53.52 kg

DRUGS (5)
  1. TAMOXIFEN [Suspect]
     Active Substance: TAMOXIFEN
     Indication: OESTROGEN RECEPTOR ASSAY POSITIVE
     Route: 048
     Dates: start: 20120924, end: 20141204
  2. ANASTROZOLE 1 MG INTAS PHARMACEUTICALS [Suspect]
     Active Substance: ANASTROZOLE
     Indication: BREAST CANCER
     Route: 048
     Dates: start: 20141205, end: 20150519
  3. MULTIPLE VITAMINS WITH IRON [Concomitant]
  4. TAMOXIFEN [Suspect]
     Active Substance: TAMOXIFEN
     Indication: BREAST CANCER
     Route: 048
     Dates: start: 20120924, end: 20141204
  5. ANASTROZOLE 1 MG INTAS PHARMACEUTICALS [Suspect]
     Active Substance: ANASTROZOLE
     Indication: OESTROGEN RECEPTOR ASSAY POSITIVE
     Route: 048
     Dates: start: 20141205, end: 20150519

REACTIONS (2)
  - Menopause [None]
  - Postmenopausal haemorrhage [None]

NARRATIVE: CASE EVENT DATE: 20140127
